FAERS Safety Report 7655013-3 (Version None)
Quarter: 2011Q3

REPORT INFORMATION
  Report Type: 
  Country: None (occurrence: None)
  Receive Date: 20110803
  Receipt Date: 20110803
  Transmission Date: 20111222
  Serious: Yes (Hospitalization)
  Sender: FDA-Public Use
  Company Number: None

PATIENT
  Sex: Female
  Weight: 76 kg

DRUGS (1)
  1. CISPLATIN [Suspect]
     Dosage: 70 MG

REACTIONS (13)
  - COUGH [None]
  - PULMONARY EMBOLISM [None]
  - HYPOCALCAEMIA [None]
  - PULMONARY HAEMORRHAGE [None]
  - NEUTROPENIA [None]
  - METASTASES TO LUNG [None]
  - DEHYDRATION [None]
  - LUNG INFECTION [None]
  - PULMONARY INFARCTION [None]
  - LEUKOPENIA [None]
  - HYPONATRAEMIA [None]
  - HYPOTENSION [None]
  - THROMBOCYTOPENIA [None]
